FAERS Safety Report 23742396 (Version 1)
Quarter: 2024Q2

REPORT INFORMATION
  Report Type: Report from Study
  Country: TH (occurrence: None)
  Receive Date: 20240415
  Receipt Date: 20240415
  Transmission Date: 20240715
  Serious: Yes (Death, Hospitalization)
  Sender: FDA-Public Use
  Company Number: 2022A352656

PATIENT
  Age: 27181 Day
  Sex: Female

DRUGS (1)
  1. TAGRISSO [Suspect]
     Active Substance: OSIMERTINIB
     Indication: Non-small cell lung cancer metastatic
     Dosage: 80.0MG UNKNOWN
     Route: 048
     Dates: start: 20201201, end: 202209

REACTIONS (12)
  - Skin discolouration [Fatal]
  - Hypotension [Fatal]
  - Blood pH decreased [Fatal]
  - Dry mouth [Fatal]
  - Stomatitis [Fatal]
  - Syncope [Fatal]
  - Pain [Fatal]
  - Lung infiltration [Fatal]
  - Asthenia [Fatal]
  - Drug resistance [Fatal]
  - Heart rate decreased [Fatal]
  - Insomnia [Fatal]

NARRATIVE: CASE EVENT DATE: 20220701
